FAERS Safety Report 11312281 (Version 2)
Quarter: 2015Q3

REPORT INFORMATION
  Report Type: Spontaneous
  Country: US (occurrence: None)
  Receive Date: 20150723
  Receipt Date: 20150806
  Transmission Date: 20151125
  Serious: Yes (Other)
  Sender: FDA-Public Use
  Company Number: DEP_03170_2015

PATIENT
  Age: 53 Year
  Sex: Female
  Weight: 125 kg

DRUGS (7)
  1. NUCYNTA [Suspect]
     Active Substance: TAPENTADOL HYDROCHLORIDE
     Indication: OFF LABEL USE
     Dosage: 0.5.TO 1 DF
     Route: 048
     Dates: start: 2014
  2. NUCYNTA [Suspect]
     Active Substance: TAPENTADOL HYDROCHLORIDE
     Indication: BREAKTHROUGH PAIN
     Dosage: 0.5.TO 1 DF
     Route: 048
     Dates: start: 2014
  3. REMERON [Concomitant]
     Active Substance: MIRTAZAPINE
  4. ESTROGEN  W/TESTOSTERONE [Concomitant]
  5. NUCYNTA [Suspect]
     Active Substance: TAPENTADOL HYDROCHLORIDE
     Indication: BACK PAIN
     Dosage: 0.5.TO 1 DF
     Route: 048
     Dates: start: 2014
  6. NUCYNTA ER [Suspect]
     Active Substance: TAPENTADOL HYDROCHLORIDE
     Indication: BACK PAIN
     Dosage: DF
     Dates: start: 2012, end: 20150702
  7. TRAZODONE [Concomitant]
     Active Substance: TRAZODONE HYDROCHLORIDE

REACTIONS (5)
  - Drug ineffective [None]
  - Impaired driving ability [None]
  - Feeling abnormal [None]
  - Somnolence [None]
  - Treatment noncompliance [None]

NARRATIVE: CASE EVENT DATE: 201407
